FAERS Safety Report 24530849 (Version 2)
Quarter: 2024Q4

REPORT INFORMATION
  Report Type: Spontaneous
  Country: ES (occurrence: ES)
  Receive Date: 20241021
  Receipt Date: 20241129
  Transmission Date: 20250115
  Serious: Yes (Hospitalization)
  Sender: ORGANON
  Company Number: ES-ABBVIE-5904748

PATIENT
  Age: 36 Year
  Sex: Male
  Weight: 63 kg

DRUGS (11)
  1. MIRTAZAPINE [Suspect]
     Active Substance: MIRTAZAPINE
     Indication: Depression
     Dosage: UNK, Q24H
     Route: 048
     Dates: start: 202401, end: 202407
  2. RISANKIZUMAB [Suspect]
     Active Substance: RISANKIZUMAB
     Indication: Crohn^s disease
     Dosage: UNK
     Route: 042
     Dates: start: 202405, end: 2024
  3. RISANKIZUMAB [Suspect]
     Active Substance: RISANKIZUMAB
     Dosage: UNK
     Route: 042
     Dates: start: 2024, end: 2024
  4. RISANKIZUMAB [Suspect]
     Active Substance: RISANKIZUMAB
     Dosage: UNK
     Route: 042
     Dates: start: 2024, end: 2024
  5. RISANKIZUMAB [Suspect]
     Active Substance: RISANKIZUMAB
     Indication: Crohn^s disease
     Dosage: UNK
     Route: 042
     Dates: start: 20240509, end: 2024
  6. RISANKIZUMAB [Suspect]
     Active Substance: RISANKIZUMAB
     Dosage: UNK
     Route: 058
     Dates: start: 20240821, end: 202408
  7. RISANKIZUMAB [Suspect]
     Active Substance: RISANKIZUMAB
     Dosage: 360 MILLIGRAM
     Route: 058
     Dates: start: 20240823
  8. RISANKIZUMAB [Suspect]
     Active Substance: RISANKIZUMAB
     Dosage: UNK
     Route: 042
     Dates: start: 2024, end: 2024
  9. VITAMIN COMPLEX [Concomitant]
     Indication: Viral infection
     Dosage: UNK
     Route: 048
     Dates: start: 202407, end: 202407
  10. ACETAMINOPHEN [Concomitant]
     Active Substance: ACETAMINOPHEN
     Indication: Viral infection
     Dosage: UNK, Q24H
     Route: 048
     Dates: start: 202407, end: 202407
  11. FERROUS SULFATE [Concomitant]
     Active Substance: FERROUS SULFATE
     Indication: Anaemia
     Dosage: UNK, Q24H
     Route: 048
     Dates: start: 202407, end: 202407

REACTIONS (3)
  - Neutropenia [Recovered/Resolved]
  - Viral infection [Recovered/Resolved]
  - White blood cell count decreased [Unknown]

NARRATIVE: CASE EVENT DATE: 20240701
